FAERS Safety Report 10046828 (Version 3)
Quarter: 2014Q2

REPORT INFORMATION
  Report Type: Spontaneous
  Country: JP (occurrence: JP)
  Receive Date: 20140331
  Receipt Date: 20140602
  Transmission Date: 20141212
  Serious: Yes (Hospitalization)
  Sender: FDA-Public Use
  Company Number: PHHY2014JP038130

PATIENT
  Age: 84 Year
  Sex: Female

DRUGS (1)
  1. EXELON PATCH [Suspect]
     Indication: DEMENTIA
     Dosage: 9.5 MG/24 HOURS (18 MG, DAILY BASE)
     Route: 062

REACTIONS (3)
  - Gastroenteritis [Recovered/Resolved]
  - Application site discolouration [Unknown]
  - Application site pruritus [Unknown]
